FAERS Safety Report 26183209 (Version 1)
Quarter: 2025Q4

REPORT INFORMATION
  Report Type: Spontaneous
  Country: EU (occurrence: EU)
  Receive Date: 20251221
  Receipt Date: 20251221
  Transmission Date: 20260118
  Serious: Yes (Hospitalization, Other)
  Sender: AUROBINDO
  Company Number: EU-AEMPS-1787007

PATIENT
  Age: 59 Year
  Sex: Male

DRUGS (3)
  1. ALLOPURINOL [Suspect]
     Active Substance: ALLOPURINOL
     Indication: Plasmacytoma
     Dosage: 300 MILLIGRAM, ONCE A DAY(300 MG, 1 VEZ AL D?A)
     Route: 061
     Dates: start: 20250213, end: 20250702
  2. MOXIFLOXACIN [Suspect]
     Active Substance: MOXIFLOXACIN
     Indication: Wound dehiscence
     Dosage: 400 MILLIGRAM, ONCE A DAY(400 MG, 1 VEZ AL D?A)
     Route: 061
     Dates: start: 20250407, end: 20250613
  3. IBUPROFEN [Suspect]
     Active Substance: IBUPROFEN
     Indication: Analgesic therapy
     Dosage: 600 MILLIGRAM, 3 TIMES A DAY(600 MG, 3 VECES AL D?A)
     Route: 061
     Dates: start: 20250519, end: 20250626

REACTIONS (1)
  - Acute generalised exanthematous pustulosis [Recovered/Resolved]

NARRATIVE: CASE EVENT DATE: 20250627
